FAERS Safety Report 8611262 (Version 2)
Quarter: 2012Q4

REPORT INFORMATION
  Report Type: 
  Country: US (occurrence: US)
  Receive Date: 20120612
  Receipt Date: 20120828
  Transmission Date: 20130627
  Serious: Yes (Other)
  Sender: FDA-Public Use
  Company Number: US-FRI-1000031064

PATIENT
  Age: 74 None
  Sex: Female
  Weight: 48.5 kg

DRUGS (5)
  1. DALIRESP [Suspect]
     Indication: CHRONIC OBSTRUCTIVE PULMONARY DISEASE
     Dosage: 500 mcg
     Route: 048
     Dates: start: 201203
  2. BIAXIN [Suspect]
     Dates: start: 201205
  3. ARMOUR THYROID [Concomitant]
     Indication: HYPOTHYROIDISM
  4. SPIRONOLACTONE [Concomitant]
  5. TYLENOL [Concomitant]

REACTIONS (9)
  - Skin cancer [Recovering/Resolving]
  - Paraesthesia [Recovered/Resolved]
  - Swelling face [Recovered/Resolved]
  - Nausea [Recovered/Resolved]
  - Squamous cell carcinoma of skin [None]
  - Malignant neoplasm progression [None]
  - Actinic keratosis [None]
  - Skin papilloma [None]
  - Seborrhoeic keratosis [None]
